FAERS Safety Report 16142961 (Version 1)
Quarter: 2019Q2

REPORT INFORMATION
  Report Type: Spontaneous
  Country: FR (occurrence: FR)
  Receive Date: 20190401
  Receipt Date: 20190401
  Transmission Date: 20190711
  Serious: Yes (Death)
  Sender: FDA-Public Use
  Company Number: FR-ASTRAZENECA-2019SE48300

PATIENT
  Sex: Male

DRUGS (6)
  1. LORAZEPAM. [Suspect]
     Active Substance: LORAZEPAM
     Route: 048
  2. QUETIAPINE. [Suspect]
     Active Substance: QUETIAPINE
     Route: 048
  3. ALIMEMAZINE [Suspect]
     Active Substance: TRIMEPRAZINE
     Route: 048
  4. CITALOPRAM [Suspect]
     Active Substance: CITALOPRAM HYDROBROMIDE
     Route: 048
  5. OXYCODONE [Suspect]
     Active Substance: OXYCODONE
     Route: 048
  6. PARACETAMOL [Suspect]
     Active Substance: ACETAMINOPHEN
     Route: 048

REACTIONS (1)
  - Death [Fatal]

NARRATIVE: CASE EVENT DATE: 2016
